FAERS Safety Report 9205980 (Version 1)
Quarter: 2013Q2

REPORT INFORMATION
  Report Type: Spontaneous
  Country: US (occurrence: US)
  Receive Date: 20130403
  Receipt Date: 20130403
  Transmission Date: 20140414
  Serious: Yes (Other)
  Sender: FDA-Public Use
  Company Number: US-GENZYME-CLOF-1002576

PATIENT
  Age: 83 Year
  Sex: Male

DRUGS (1)
  1. CLOLAR [Suspect]
     Indication: ACUTE MYELOID LEUKAEMIA
     Dosage: FIRST CYCLE
     Route: 065
     Dates: start: 2013, end: 2013

REACTIONS (2)
  - Proteinuria [Not Recovered/Not Resolved]
  - Renal glycosuria [Not Recovered/Not Resolved]
